FAERS Safety Report 16104521 (Version 13)
Quarter: 2022Q2

REPORT INFORMATION
  Report Type: Spontaneous
  Country: GB (occurrence: GB)
  Receive Date: 20190322
  Receipt Date: 20220517
  Transmission Date: 20220720
  Serious: Yes (Death, Life-Threatening, Hospitalization, Other)
  Sender: FDA-Public Use
  Company Number: None

PATIENT
  Age: 47 Year
  Sex: Female

DRUGS (17)
  1. AMLODIPINE BESYLATE [Suspect]
     Active Substance: AMLODIPINE BESYLATE
     Indication: Hypertension
     Dosage: 100 MILLIGRAM, QD
     Route: 048
     Dates: start: 20180928, end: 20180928
  2. LANSOPRAZOLE [Suspect]
     Active Substance: LANSOPRAZOLE
     Indication: Gastrooesophageal reflux disease
     Dosage: 30 MILLIGRAM/DAY
     Route: 065
     Dates: end: 20180928
  3. LANSOPRAZOLE [Suspect]
     Active Substance: LANSOPRAZOLE
     Indication: Blood cholesterol increased
     Dosage: 40 MILLIGRAM, QD
     Route: 048
  4. EZETIMIBE [Suspect]
     Active Substance: EZETIMIBE
     Indication: Blood cholesterol increased
     Dosage: 10 MILLIGRAM/DAY
     Route: 048
     Dates: end: 20180928
  5. LOSARTAN [Suspect]
     Active Substance: LOSARTAN
     Indication: Hypertension
     Dosage: 200 MILLIGRAM, QD
     Route: 048
     Dates: start: 20170317, end: 20180928
  6. LOSARTAN [Suspect]
     Active Substance: LOSARTAN
     Indication: Schizophrenia
     Dosage: 100 MILLIGRAM, QD
     Route: 048
     Dates: end: 20180928
  7. CLOZAPINE [Suspect]
     Active Substance: CLOZAPINE
     Indication: Schizophrenia
     Dosage: 200 MILLIGRAM, QD
     Route: 048
     Dates: start: 20170317, end: 20180928
  8. CLOZAPINE [Suspect]
     Active Substance: CLOZAPINE
     Indication: Blood cholesterol increased
     Dosage: 100 MILLIGRAM, QD
     Route: 048
     Dates: start: 20180928, end: 20180928
  9. CLOZAPINE [Suspect]
     Active Substance: CLOZAPINE
     Indication: Product used for unknown indication
     Dosage: 10 MILLIGRAM, QD
     Route: 048
     Dates: end: 20180928
  10. HUMALOG MIX50/50 [Suspect]
     Active Substance: INSULIN LISPRO
     Indication: Diabetes mellitus
     Dosage: 360 INTERNATIONAL UNIT, TID
     Route: 048
     Dates: end: 20180928
  11. HUMALOG MIX50/50 [Suspect]
     Active Substance: INSULIN LISPRO
     Dosage: 180 INTERNATIONAL UNIT, TID (8 HOURS)
     Route: 048
     Dates: end: 20180928
  12. HUMALOG MIX50/50 [Suspect]
     Active Substance: INSULIN LISPRO
     Dosage: 120 INTERNATIONAL UNIT, TID
     Route: 048
     Dates: end: 20180928
  13. HUMALOG MIX50/50 [Suspect]
     Active Substance: INSULIN LISPRO
     Dosage: 60 INTERNATIONAL UNIT
     Route: 048
     Dates: end: 20180928
  14. FELODIPINE [Suspect]
     Active Substance: FELODIPINE
     Indication: Hypertension
     Dosage: 10 MILLIGRAM, QD
     Route: 048
     Dates: end: 20180928
  15. SERTRALINE [Suspect]
     Active Substance: SERTRALINE HYDROCHLORIDE
     Indication: Depression
     Dosage: 50 MILLIGRAM, QD
     Route: 048
     Dates: start: 201709, end: 20180928
  16. PRAVASTATIN [Suspect]
     Active Substance: PRAVASTATIN
     Indication: Blood cholesterol increased
     Dosage: 40 MILLIGRAM, QD
     Route: 048
  17. PRAVASTATIN [Suspect]
     Active Substance: PRAVASTATIN
     Indication: Depression
     Dosage: 50 MILLIGRAM, QD
     Route: 048
     Dates: start: 201709

REACTIONS (8)
  - Multiple organ dysfunction syndrome [Fatal]
  - Pneumonia [Fatal]
  - Loss of consciousness [Fatal]
  - Incorrect route of product administration [Fatal]
  - Medication error [Fatal]
  - Intentional product misuse [Fatal]
  - Off label use [Fatal]
  - Overdose [Fatal]

NARRATIVE: CASE EVENT DATE: 20180101
